FAERS Safety Report 9422169 (Version 1)
Quarter: 2013Q3

REPORT INFORMATION
  Report Type: Spontaneous
  Country: FR (occurrence: FR)
  Receive Date: 20130726
  Receipt Date: 20130726
  Transmission Date: 20140515
  Serious: Yes (Hospitalization)
  Sender: FDA-Public Use
  Company Number: FR-MERCK-1307FRA009877

PATIENT
  Age: 27 Year
  Sex: Female

DRUGS (1)
  1. VARNOLINE [Suspect]
     Indication: ORAL CONTRACEPTION
     Dosage: UNK
     Route: 048
     Dates: start: 2009, end: 201211

REACTIONS (3)
  - Inflammation [Not Recovered/Not Resolved]
  - Pyrexia [Recovering/Resolving]
  - Abdominal pain [Recovered/Resolved]
